FAERS Safety Report 9645473 (Version 1)
Quarter: 2013Q4

REPORT INFORMATION
  Report Type: Report from Study
  Country: US (occurrence: US)
  Receive Date: 20131025
  Receipt Date: 20131025
  Transmission Date: 20140711
  Serious: Yes (Other)
  Sender: FDA-Public Use
  Company Number: US-BAYER-2013-127377

PATIENT
  Sex: Male

DRUGS (2)
  1. ACETYLSALICYLIC ACID (} 100 MG) [Suspect]
  2. CLOPIDOGREL [Suspect]

REACTIONS (4)
  - Haemothorax [None]
  - Haemoglobin decreased [None]
  - Pleural effusion [None]
  - Labelled drug-drug interaction medication error [None]
